FAERS Safety Report 4693604-2 (Version None)
Quarter: 2005Q2

REPORT INFORMATION
  Report Type: 
  Country: None (occurrence: None)
  Receive Date: 20050616
  Receipt Date: 20050602
  Transmission Date: 20051028
  Serious: Yes (Hospitalization)
  Sender: FDA-Public Use
  Company Number: HQWYE133702JUN05

PATIENT
  Age: 67 Year
  Sex: Male

DRUGS (5)
  1. AMIODARONE HCL [Suspect]
     Dosage: SEE IMAGE
  2. AMIODARONE HCL [Suspect]
     Dosage: SEE IMAGE
  3. METOPROLOL TARTRATE [Concomitant]
  4. CARVEDILOL [Concomitant]
  5. MEXILETINE HCL [Concomitant]

REACTIONS (2)
  - ASTHMA [None]
  - RESPIRATORY DISTRESS [None]
